FAERS Safety Report 5198702-5 (Version None)
Quarter: 2007Q1

REPORT INFORMATION
  Report Type: 
  Country: None (occurrence: None)
  Receive Date: 20070104
  Receipt Date: 20061222
  Transmission Date: 20070707
  Serious: Yes (Death, Other)
  Sender: FDA-Public Use
  Company Number: CH-ELI_LILLY_AND_COMPANY-CH200612004233

PATIENT
  Age: 25 Week
  Sex: Female

DRUGS (3)
  1. FLUCTINE [Suspect]
     Indication: DEPRESSION
     Dosage: 20 MG, 2/D
     Route: 064
  2. TEMESTA                                 /NET/ [Concomitant]
     Indication: DEPRESSION
     Dosage: UNK, UNK
     Route: 015
  3. ZYRTEC [Concomitant]
     Indication: URTICARIA
     Dosage: UNK, UNK
     Route: 015
     Dates: start: 20010101

REACTIONS (7)
  - ABORTION INDUCED [None]
  - DRUG EXPOSURE DURING PREGNANCY [None]
  - FOETAL GROWTH RETARDATION [None]
  - INTRA-UTERINE DEATH [None]
  - OLIGOHYDRAMNIOS [None]
  - PREGNANCY [None]
  - ULTRASOUND DOPPLER ABNORMAL [None]
